FAERS Safety Report 9450783 (Version 1)
Quarter: 2013Q3

REPORT INFORMATION
  Report Type: Spontaneous
  Country: US (occurrence: US)
  Receive Date: 20130809
  Receipt Date: 20130809
  Transmission Date: 20140515
  Serious: No
  Sender: FDA-Public Use
  Company Number: US-AMGEN-USASP2013032988

PATIENT
  Age: 64 Year
  Sex: Male

DRUGS (9)
  1. NEUPOGEN [Suspect]
     Indication: WHITE BLOOD CELL COUNT DECREASED
     Dosage: UNK
     Dates: start: 20130427
  2. TACROLIMUS [Concomitant]
     Dosage: UNK
  3. URSODIOL [Concomitant]
     Dosage: UNK
  4. PREDNISONE [Concomitant]
     Dosage: UNK
  5. NADOLOL [Concomitant]
     Dosage: UNK
  6. CENTRUM                            /07499601/ [Concomitant]
     Dosage: UNK
  7. MAGNESIUM OXIDE [Concomitant]
     Dosage: UNK
  8. IRON [Concomitant]
     Dosage: UNK
  9. VANCOMYCIN [Concomitant]
     Indication: KLEBSIELLA INFECTION
     Dosage: UNK

REACTIONS (2)
  - Spleen disorder [Unknown]
  - Discomfort [Unknown]
